FAERS Safety Report 5241975-0 (Version None)
Quarter: 2007Q1

REPORT INFORMATION
  Report Type: 
  Country: None (occurrence: None)
  Receive Date: 20070220
  Receipt Date: 20070208
  Transmission Date: 20070707
  Serious: Yes (Other)
  Sender: FDA-Public Use
  Company Number: FR-PFIZER INC-2007011206

PATIENT
  Sex: Female

DRUGS (2)
  1. LYRICA [Suspect]
     Indication: NEURALGIA
  2. PARACETAMOL [Concomitant]

REACTIONS (5)
  - CHEST DISCOMFORT [None]
  - FALL [None]
  - MALAISE [None]
  - MYOCLONUS [None]
  - WEIGHT INCREASED [None]
